FAERS Safety Report 11685518 (Version 1)
Quarter: 2015Q4

REPORT INFORMATION
  Report Type: Report from Study
  Country: US (occurrence: US)
  Receive Date: 20151030
  Receipt Date: 20151030
  Transmission Date: 20160304
  Serious: Yes (Other)
  Sender: FDA-Public Use
  Company Number: PHEH2015US021516

PATIENT
  Sex: Female
  Weight: 95.42 kg

DRUGS (2)
  1. GILENYA [Suspect]
     Active Substance: FINGOLIMOD HYDROCHLORIDE
     Indication: MULTIPLE SCLEROSIS RELAPSE
     Dosage: 0.5 MG, QD
     Route: 048
     Dates: start: 20110613
  2. DALFAMPRIDINE [Concomitant]
     Active Substance: DALFAMPRIDINE
     Indication: PRODUCT USED FOR UNKNOWN INDICATION
     Route: 065

REACTIONS (14)
  - Muscular weakness [Unknown]
  - Joint swelling [Unknown]
  - Scoliosis [Unknown]
  - Neck pain [Unknown]
  - Intervertebral disc degeneration [Unknown]
  - Rash [Unknown]
  - Gait disturbance [Unknown]
  - Fall [Unknown]
  - Joint injury [Unknown]
  - Ligament sprain [Unknown]
  - Arthralgia [Unknown]
  - Back pain [Unknown]
  - Central nervous system lesion [Unknown]
  - Oedema peripheral [Unknown]
